FAERS Safety Report 4517797-2 (Version None)
Quarter: 2004Q4

REPORT INFORMATION
  Report Type: 
  Country: None (occurrence: None)
  Receive Date: 20041203
  Receipt Date: 20041125
  Transmission Date: 20050328
  Serious: Yes (Hospitalization)
  Sender: FDA-Public Use
  Company Number: BR-ROCHE-387340

PATIENT
  Age: 15 Year
  Sex: Male
  Weight: 65 kg

DRUGS (2)
  1. ROACUTAN [Suspect]
     Indication: ACNE
     Route: 048
     Dates: start: 20040815
  2. ROACUTAN [Suspect]
     Route: 048
     Dates: end: 20040915

REACTIONS (12)
  - ARTHRALGIA [None]
  - BACK PAIN [None]
  - BLOOD ALBUMIN DECREASED [None]
  - GANGLION [None]
  - JUVENILE ARTHRITIS [None]
  - LEUKOCYTOSIS [None]
  - LYMPHOMA [None]
  - NEPHROTIC SYNDROME [None]
  - OEDEMA [None]
  - PROTEINURIA [None]
  - PYREXIA [None]
  - RENAL DISORDER [None]
